FAERS Safety Report 5839350-0 (Version None)
Quarter: 2008Q3

REPORT INFORMATION
  Report Type: 
  Country: None (occurrence: None)
  Receive Date: 20080806
  Receipt Date: 20080725
  Transmission Date: 20090109
  Serious: Yes (Hospitalization)
  Sender: FDA-Public Use
  Company Number: 02100-JPN-06-0343

PATIENT
  Age: 68 Year
  Sex: Female

DRUGS (23)
  1. PLETAL [Suspect]
     Indication: CEREBRAL INFARCTION
     Dosage: 100 MG, BID ORAL
     Route: 048
     Dates: start: 20060307, end: 20060929
  2. PLAVIX [Suspect]
     Indication: CEREBRAL INFARCTION
     Dosage: 75 MG, DAILY DOSE ORAL
     Route: 048
     Dates: start: 20060307, end: 20060929
  3. PLETAL [Suspect]
     Indication: CEREBRAL INFARCTION
     Dosage: 100 MG, DAILY ORAL; ORAL
     Route: 048
     Dates: start: 20080122, end: 20080716
  4. CETRAXATE HYDROCHLORIDE (CETRAXATE HYDROCHLORIDE) UNKNOWN [Concomitant]
  5. MAGNESIUM OXIDE (MAGNESIUM OXIDE) UNKNOWN [Concomitant]
  6. AROTINOLOL HYDROCHLORIDE (AROTINOLOL HYDROCHLORIDE) UNKNOWN [Concomitant]
  7. ATORVASTATIN CALCIUM (ATORVASTATIN CALCIUM) UNKNOWN [Concomitant]
  8. DOMPERIDONE (DOMPERIDONE) UNKNOWN [Concomitant]
  9. MIRTAZAPINE [Concomitant]
  10. CARBIDOPA PLUS LEVODOPA (CARBIDOPA PLUS LEVODOPA) UNKNOWN [Concomitant]
  11. ZOLPIDEM TARTRATE [Concomitant]
  12. ROPINIROLE (ROPINIROLE) UNKNOWN [Concomitant]
  13. ESCITALOPRAM (ESCITALOPRAM) UNKNOWN [Concomitant]
  14. HUMAN INSULIN (HUMAN INSULIN) UNKNOWN [Concomitant]
  15. ASPIRIN [Concomitant]
  16. ASPIRIN [Concomitant]
  17. CLONAZEPAM (CLONAZEPAM) UNKNOWN [Concomitant]
  18. AMITRIPTYLINE HYDROCHLORIDE (AMITRIPTYLINE HYDROCHLORIDE) UNKNOWN [Concomitant]
  19. THIOCTIC ACID (THIOCTIC ACID) UNKNOWN [Concomitant]
  20. ARONAMIN C PLUS (ARONAMIN C PLUS) TABLET [Concomitant]
  21. GAMMA-LINOLENIC ACID (GAMMA-LINOLENIC ACID) UNKNOWN [Concomitant]
  22. DAGES CAPSULE (DAGES CAPSULE) CAPSULE [Concomitant]
  23. GLIMEPIRIDE (GLIMEPIRIDE) UNKNOWN [Concomitant]

REACTIONS (6)
  - COMPRESSION FRACTURE [None]
  - CONSTIPATION [None]
  - DIZZINESS [None]
  - FLANK PAIN [None]
  - LUMBAR VERTEBRAL FRACTURE [None]
  - RIB FRACTURE [None]
